FAERS Safety Report 14620743 (Version 3)
Quarter: 2019Q2

REPORT INFORMATION
  Report Type: Spontaneous
  Country: FR (occurrence: FR)
  Receive Date: 20180309
  Receipt Date: 20190403
  Transmission Date: 20190711
  Serious: Yes (Hospitalization)
  Sender: FDA-Public Use
  Company Number: FR-SA-2018SA053264

PATIENT
  Age: 66 Year
  Sex: Male

DRUGS (28)
  1. MACROGOL 3350/POTASSIUM CHLORIDE/SODIUM BICARBONATE/SODIUM CHLORIDE [Suspect]
     Active Substance: POLYETHYLENE GLYCOL 3350\POTASSIUM CHLORIDE\SODIUM BICARBONATE\SODIUM CHLORIDE
     Indication: CONSTIPATION
     Dosage: 10 G,QD
     Route: 048
  2. VANCOMYCIN [Suspect]
     Active Substance: VANCOMYCIN
     Indication: INTERVERTEBRAL DISCITIS
     Dosage: 1750 MG, QD
     Route: 048
     Dates: start: 20180121, end: 20180124
  3. LOVENOX [Suspect]
     Active Substance: ENOXAPARIN SODIUM
     Indication: EMBOLISM VENOUS
     Dosage: 4000 IU,UNK
     Route: 058
     Dates: start: 20180118, end: 20180129
  4. TIMOLOL MALEATE/TRAVOPROST [Suspect]
     Active Substance: TIMOLOL MALEATE\TRAVOPROST
     Indication: GLAUCOMA
     Dosage: 2 DF,QD
     Route: 047
     Dates: start: 20180122, end: 20180214
  5. OXYCODONE [Concomitant]
     Active Substance: OXYCODONE
     Dosage: 80 MG, QD
  6. POLYETHYLENE GLYCOL [Concomitant]
     Active Substance: POLYETHYLENE GLYCOLS
  7. LASILIX [Suspect]
     Active Substance: FUROSEMIDE
     Indication: INTERVERTEBRAL DISCITIS
     Dosage: 80 MG,QD
     Route: 042
     Dates: start: 20180203, end: 20180205
  8. ERYTHROMYCIN. [Suspect]
     Active Substance: ERYTHROMYCIN
     Indication: INTERVERTEBRAL DISCITIS
     Dosage: 250 MG,UNK
     Route: 042
     Dates: start: 20180202, end: 20180202
  9. METHOTREXATE. [Concomitant]
     Active Substance: METHOTREXATE
  10. SILODOSINE [Concomitant]
     Active Substance: SILODOSIN
     Dosage: 8 MG, QD
  11. DILTIAZEM. [Concomitant]
     Active Substance: DILTIAZEM
     Dosage: 200 MG, QD
  12. PIPERACILLIN SODIUM/TAZOBACTAM SODIUM [Suspect]
     Active Substance: PIPERACILLIN SODIUM\TAZOBACTAM SODIUM
     Indication: INTERVERTEBRAL DISCITIS
     Dosage: 3 DF,QD
     Route: 042
     Dates: start: 20180121, end: 20180128
  13. RIFADINE [Suspect]
     Active Substance: RIFAMPIN
     Indication: INTERVERTEBRAL DISCITIS
     Dosage: 1200 MG,QD
     Route: 048
     Dates: start: 20180129, end: 20180207
  14. LANSOPRAZOLE. [Suspect]
     Active Substance: LANSOPRAZOLE
     Indication: PEPTIC ULCER
     Dosage: 30 MG, QD
     Route: 048
     Dates: start: 20180206, end: 20180214
  15. OMEPRAZOLE. [Concomitant]
     Active Substance: OMEPRAZOLE
  16. OXYCODONE [Concomitant]
     Active Substance: OXYCODONE
     Dosage: 30 UNK
  17. CALCIPARINE [Suspect]
     Active Substance: HEPARIN CALCIUM
     Indication: EMBOLISM VENOUS
     Dosage: 20000 IU,UNK
     Route: 058
     Dates: start: 20180214
  18. PANTOPRAZOLE [Suspect]
     Active Substance: PANTOPRAZOLE
     Indication: GASTROINTESTINAL HAEMORRHAGE
     Dosage: 8 MG, QH
     Route: 042
     Dates: start: 20180202, end: 20180205
  19. HEPARIN SODIUM. [Suspect]
     Active Substance: HEPARIN SODIUM
     Dosage: 25000 IU, QD STOPON 14-FEB-2018 00:00
     Route: 058
  20. PREDNISONE. [Concomitant]
     Active Substance: PREDNISONE
     Dosage: 10 MG, QD
  21. VALSARTAN. [Concomitant]
     Active Substance: VALSARTAN
     Dosage: 80 MG, QD
  22. ATORVASTATINE [ATORVASTATIN] [Concomitant]
     Active Substance: ATORVASTATIN
     Dosage: 140 MG, QD
  23. ETANERCEPT [Concomitant]
     Active Substance: ETANERCEPT
     Dosage: UNK
     Route: 065
     Dates: start: 2016, end: 201803
  24. OFLOCET [Suspect]
     Active Substance: OFLOXACIN
     Indication: URINARY TRACT INFECTION
     Dosage: UNK UNK,UNK
     Route: 048
     Dates: start: 20180109, end: 20180116
  25. TAVANIC [Suspect]
     Active Substance: LEVOFLOXACIN
     Indication: INTERVERTEBRAL DISCITIS
     Dosage: 500 MG, BID
     Route: 048
     Dates: start: 20180129, end: 20180205
  26. HEPARIN SODIUM. [Suspect]
     Active Substance: HEPARIN SODIUM
     Indication: EMBOLISM VENOUS
     Dosage: 60000 IU, QD
     Route: 058
     Dates: start: 20180129
  27. LEVOTHYROX [Concomitant]
     Active Substance: LEVOTHYROXINE
     Dosage: 100 UG, UNK
     Route: 065
  28. LEFLUNOMIDE. [Concomitant]
     Active Substance: LEFLUNOMIDE
     Dosage: 20 MG, QD
     Route: 065
     Dates: start: 2016

REACTIONS (1)
  - Drug reaction with eosinophilia and systemic symptoms [Recovered/Resolved]

NARRATIVE: CASE EVENT DATE: 20180204
